FAERS Safety Report 8285664-7 (Version None)
Quarter: 2012Q2

REPORT INFORMATION
  Report Type: 
  Country: None (occurrence: None)
  Receive Date: 20120413
  Receipt Date: 20120411
  Transmission Date: 20120825
  Serious: Yes (Hospitalization)
  Sender: FDA-Public Use
  Company Number: US-AMGEN-USASP2011000232

PATIENT
  Age: 64 Year
  Sex: Female
  Weight: 75.283 kg

DRUGS (11)
  1. VITAMIN D [Concomitant]
     Dosage: 50000 IU, QWK
  2. COLACE [Concomitant]
  3. NEXIUM [Concomitant]
  4. COZAAR [Concomitant]
  5. PROLIA [Suspect]
     Dates: start: 20101201
  6. VYTORIN [Concomitant]
  7. ASPIRIN [Concomitant]
     Dosage: 81 MG, QD
  8. LOVAZA [Concomitant]
  9. PROLIA [Suspect]
     Indication: OSTEOPOROSIS
     Dosage: 60 MG, Q6MO
     Route: 058
     Dates: start: 20100811
  10. TRICOR [Concomitant]
  11. MULTI-VITAMINS [Concomitant]

REACTIONS (2)
  - INJECTION SITE PAIN [None]
  - NEPHROLITHIASIS [None]
